FAERS Safety Report 23613804 (Version 1)
Quarter: 2024Q1

REPORT INFORMATION
  Report Type: Spontaneous
  Country: FR (occurrence: FR)
  Receive Date: 20240310
  Receipt Date: 20240310
  Transmission Date: 20240410
  Serious: Yes (Hospitalization)
  Sender: FDA-Public Use
  Company Number: FR-AFSSAPS-TS2024000199

PATIENT
  Age: 63 Year
  Sex: Male
  Weight: 64 kg

DRUGS (5)
  1. IRINOTECAN [Suspect]
     Active Substance: IRINOTECAN
     Indication: Pancreatic neoplasm
     Dosage: 320 MILLIGRAM, 1 CYCLICAL
     Route: 042
     Dates: start: 20240123, end: 20240123
  2. ATROPINE [Concomitant]
     Active Substance: ATROPINE\ATROPINE SULFATE
     Indication: Pancreatic neoplasm
     Dosage: 0.25 MILLIGRAM, 1 CYCLICAL
     Route: 058
     Dates: start: 20240123, end: 20240123
  3. METHYLPREDNISOLONE [Concomitant]
     Active Substance: METHYLPREDNISOLONE
     Indication: Pancreatic neoplasm
     Dosage: 80 MILLIGRAM, 1 CYCLICAL
     Route: 042
     Dates: start: 20240123, end: 20240123
  4. BEVACIZUMAB [Concomitant]
     Active Substance: BEVACIZUMAB
     Indication: Pancreatic neoplasm
     Dosage: 325 MILLIGRAM, 1 CYCLICAL
     Route: 042
     Dates: start: 20240123, end: 20240123
  5. ONDANSETRON [Concomitant]
     Active Substance: ONDANSETRON
     Indication: Pancreatic neoplasm
     Dosage: 8 MILLIGRAM, 1 CYCLICAL
     Route: 042
     Dates: start: 20240123, end: 20240123

REACTIONS (1)
  - Muscle contractions involuntary [Recovered/Resolved]

NARRATIVE: CASE EVENT DATE: 20240123
